FAERS Safety Report 4490862-4 (Version None)
Quarter: 2004Q4

REPORT INFORMATION
  Report Type: 
  Country: None (occurrence: None)
  Receive Date: 20041027
  Receipt Date: 20040928
  Transmission Date: 20050328
  Serious: Yes (Other)
  Sender: FDA-Public Use
  Company Number: CO-2004-033882

PATIENT
  Age: 20 Year
  Sex: Female

DRUGS (1)
  1. YASMIN [Suspect]
     Indication: ORAL CONTRACEPTION
     Dosage: 1 TAB(S), 1X/DAY, ORAL
     Route: 048
     Dates: start: 20040301, end: 20040830

REACTIONS (3)
  - BLIGHTED OVUM [None]
  - PREGNANCY ON ORAL CONTRACEPTIVE [None]
  - VAGINAL HAEMORRHAGE [None]
